FAERS Safety Report 6590404-3 (Version None)
Quarter: 2010Q1

REPORT INFORMATION
  Report Type: 
  Country: None (occurrence: None)
  Receive Date: 20100219
  Receipt Date: 20100209
  Transmission Date: 20100710
  Serious: Yes (Other)
  Sender: FDA-Public Use
  Company Number: US-ROCHE-679321

PATIENT
  Sex: Female

DRUGS (3)
  1. PEGASYS [Suspect]
     Indication: HEPATITIS C
     Dosage: FORM: VIALS
     Route: 065
     Dates: start: 20091031, end: 20100109
  2. RIBAVIRIN [Suspect]
     Indication: HEPATITIS C
     Route: 065
     Dates: start: 20091031
  3. RIBAVIRIN [Suspect]
     Dosage: DOSAGE DECREASED FOR ONE WEEK
     Route: 065
     Dates: end: 20100109

REACTIONS (5)
  - ANAEMIA [None]
  - ASTHENIA [None]
  - DYSURIA [None]
  - PYREXIA [None]
  - VOLVULUS [None]
